FAERS Safety Report 24229317 (Version 1)
Quarter: 2024Q3

REPORT INFORMATION
  Report Type: Spontaneous
  Country: US (occurrence: US)
  Receive Date: 20240820
  Receipt Date: 20240820
  Transmission Date: 20241017
  Serious: No
  Sender: DR REDDYS
  Company Number: US-DRL-USA-LIT/USA/24/0011815

PATIENT
  Age: 80 Year
  Sex: Female

DRUGS (1)
  1. POSACONAZOLE [Suspect]
     Active Substance: POSACONAZOLE
     Indication: Fungal infection
     Dosage: DELAYED RELEASE TABLETS VIA NASOGASTRIC TUBE

REACTIONS (2)
  - Drug level below therapeutic [Unknown]
  - Wrong technique in product usage process [Unknown]
